FAERS Safety Report 11895956 (Version 1)
Quarter: 2016Q1

REPORT INFORMATION
  Report Type: Spontaneous
  Country: TR (occurrence: TR)
  Receive Date: 20160107
  Receipt Date: 20160107
  Transmission Date: 20160526
  Serious: Yes (Other)
  Sender: FDA-Public Use
  Company Number: PHHY2015TR170549

PATIENT
  Age: 15 Year
  Sex: Female
  Weight: 46 kg

DRUGS (4)
  1. PHENOXYMETHYLPENICILLIN SANDOZ [Suspect]
     Active Substance: PENICILLIN V BENZATHINE
     Indication: TONSILLITIS
     Dosage: 1000000 IU, TID
     Route: 048
     Dates: start: 20151223
  2. PAROL [Concomitant]
     Active Substance: ACETAMINOPHEN
     Indication: TONSILLITIS
     Dosage: 500 MG, TID
     Route: 048
     Dates: start: 20151223
  3. DEPOSILIN [Concomitant]
     Indication: TONSILLITIS
     Route: 030
     Dates: start: 20151223, end: 20151223
  4. MAJEZIK [Concomitant]
     Active Substance: FLURBIPROFEN
     Indication: TONSILLITIS
     Dosage: 100 MG, BID
     Route: 048
     Dates: start: 20151223

REACTIONS (1)
  - Menstrual disorder [Not Recovered/Not Resolved]

NARRATIVE: CASE EVENT DATE: 20151226
